FAERS Safety Report 23571203 (Version 2)
Quarter: 2024Q2

REPORT INFORMATION
  Report Type: Spontaneous
  Country: JP (occurrence: JP)
  Receive Date: 20240227
  Receipt Date: 20240408
  Transmission Date: 20240716
  Serious: Yes (Death)
  Sender: FDA-Public Use
  Company Number: JP-LEO Pharma-367902

PATIENT
  Age: 79 Year
  Sex: Female

DRUGS (3)
  1. ADBRY [Suspect]
     Active Substance: TRALOKINUMAB-LDRM
     Indication: Product used for unknown indication
     Dosage: INJECTION 150MG SYRINGE
     Route: 058
     Dates: start: 20231209, end: 20240207
  2. Bilanoa (bilastine) [Concomitant]
     Indication: Product used for unknown indication
  3. DESALEX (desloratadine) [Concomitant]
     Indication: Product used for unknown indication

REACTIONS (1)
  - Aortic rupture [Fatal]

NARRATIVE: CASE EVENT DATE: 20240213
